FAERS Safety Report 16881211 (Version 2)
Quarter: 2019Q4

REPORT INFORMATION
  Report Type: Report from Study
  Country: US (occurrence: US)
  Receive Date: 20191003
  Receipt Date: 20191115
  Transmission Date: 20200122
  Serious: Yes (Hospitalization)
  Sender: FDA-Public Use
  Company Number: US-TAIHO ONCOLOGY  INC-EU-2019-02982

PATIENT
  Age: 71 Year
  Sex: Female
  Weight: 56.3 kg

DRUGS (1)
  1. LONSURF [Suspect]
     Active Substance: TIPIRACIL HYDROCHLORIDE\TRIFLURIDINE
     Indication: COLON CANCER
     Dosage: CURRENT CYCLE UNKNOWN. TAKE 15 MG ONCE DAILY FOR DAYS 1-5 THEN OFF FOR 2 DAYS THEN TAKE 20 MG TWICE
     Route: 048
     Dates: start: 201908, end: 201909

REACTIONS (9)
  - Diaphragmalgia [Unknown]
  - Anger [Unknown]
  - Product dose omission [Unknown]
  - Pain [Unknown]
  - Inappropriate schedule of product administration [Unknown]
  - Decreased activity [Unknown]
  - Nausea [Unknown]
  - Disease progression [Unknown]
  - White blood cell count abnormal [Unknown]

NARRATIVE: CASE EVENT DATE: 2019
